FAERS Safety Report 17783804 (Version 2)
Quarter: 2021Q3

REPORT INFORMATION
  Report Type: Report from Study
  Country: CA (occurrence: CA)
  Receive Date: 20200513
  Receipt Date: 20210715
  Transmission Date: 20211014
  Serious: Yes (Hospitalization, Other)
  Sender: FDA-Public Use
  Company Number: PHHY2015CA165772

PATIENT
  Age: 66 Year
  Sex: Female

DRUGS (4)
  1. ILARIS [Suspect]
     Active Substance: CANAKINUMAB
     Indication: MUCKLE-WELLS SYNDROME
     Dosage: 150 MG, Q 8 WEEKS
     Route: 058
     Dates: start: 20140909
  2. ILARIS [Suspect]
     Active Substance: CANAKINUMAB
     Dosage: 150 MG, Q 8 WEEKS
     Route: 058
     Dates: start: 20181215
  3. ILARIS [Suspect]
     Active Substance: CANAKINUMAB
     Dosage: 150 MG, Q 8 WEEKS
     Route: 058
     Dates: start: 20200305
  4. ILARIS [Suspect]
     Active Substance: CANAKINUMAB
     Dosage: UNK
     Route: 058
     Dates: start: 20160601

REACTIONS (13)
  - Serum amyloid A protein increased [Not Recovered/Not Resolved]
  - Gait disturbance [Unknown]
  - Iron deficiency anaemia [Unknown]
  - Joint swelling [Unknown]
  - Arthralgia [Unknown]
  - Skin disorder [Unknown]
  - Blood pressure systolic increased [Unknown]
  - Urticaria [Unknown]
  - Condition aggravated [Unknown]
  - Muckle-Wells syndrome [Unknown]
  - Splenic haematoma [Unknown]
  - Streptococcal sepsis [Unknown]
  - Drug ineffective [Unknown]

NARRATIVE: CASE EVENT DATE: 201509
